FAERS Safety Report 8772787 (Version 1)
Quarter: 2012Q4

REPORT INFORMATION
  Report Type: 
  Country: FR (occurrence: FR)
  Receive Date: 20120907
  Receipt Date: 20120907
  Transmission Date: 20130627
  Serious: Yes (Hospitalization, Other)
  Sender: FDA-Public Use
  Company Number: FR-009507513-2009SP041787

PATIENT

DRUGS (3)
  1. REBETOL [Suspect]
     Indication: HEPATITIS C
     Route: 048
     Dates: start: 20080507, end: 20090320
  2. PEGASYS [Suspect]
     Indication: HEPATITIS C
     Route: 042
     Dates: start: 20080507, end: 20090320
  3. MANTADIX [Suspect]
     Indication: HEPATITIS C
     Route: 048
     Dates: start: 20080507, end: 20090423

REACTIONS (2)
  - Idiopathic thrombocytopenic purpura [Not Recovered/Not Resolved]
  - Thrombocytopenia [Recovered/Resolved]
